FAERS Safety Report 25335688 (Version 2)
Quarter: 2025Q2

REPORT INFORMATION
  Report Type: Spontaneous
  Country: US (occurrence: US)
  Receive Date: 20250520
  Receipt Date: 20250609
  Transmission Date: 20250717
  Serious: No
  Sender: PFIZER
  Company Number: US-PFIZER INC-PV202500059893

PATIENT
  Age: 45 Year
  Sex: Male

DRUGS (9)
  1. DEMEROL [Suspect]
     Active Substance: MEPERIDINE HYDROCHLORIDE
  2. FISH OIL [Concomitant]
     Active Substance: FISH OIL
  3. IBUPROFEN [Concomitant]
     Active Substance: IBUPROFEN
  4. MAGNESIUM [Concomitant]
     Active Substance: MAGNESIUM
  5. TYLENOL [Concomitant]
     Active Substance: ACETAMINOPHEN
  6. VITAMIN D NOS [Concomitant]
     Active Substance: CHOLECALCIFEROL\ERGOCALCIFEROL
  7. AIRSUPRA [BUDESONIDE;SALBUTAMOL SULFATE] [Concomitant]
  8. CALCIUM CARBONATE/MAGNESIUM HYDROXIDE [Concomitant]
  9. CLENPIQ [Concomitant]
     Active Substance: ANHYDROUS CITRIC ACID\MAGNESIUM OXIDE\SODIUM PICOSULFATE

REACTIONS (1)
  - Urticaria [Unknown]
